FAERS Safety Report 11705128 (Version 1)
Quarter: 2015Q4

REPORT INFORMATION
  Report Type: Spontaneous
  Country: FR (occurrence: FR)
  Receive Date: 20151106
  Receipt Date: 20151106
  Transmission Date: 20160304
  Serious: Yes (Hospitalization)
  Sender: FDA-Public Use
  Company Number: FR-SA-2015SA173795

PATIENT
  Age: 90 Year
  Sex: Male

DRUGS (2)
  1. PLAVIX [Suspect]
     Active Substance: CLOPIDOGREL BISULFATE
     Route: 065
  2. KARDEGIC [Suspect]
     Active Substance: ASPIRIN LYSINE
     Route: 065

REACTIONS (1)
  - Disturbance in attention [Unknown]

NARRATIVE: CASE EVENT DATE: 20150323
